FAERS Safety Report 9675771 (Version 4)
Quarter: 2014Q3

REPORT INFORMATION
  Report Type: Spontaneous
  Country: BR (occurrence: BR)
  Receive Date: 20131107
  Receipt Date: 20140804
  Transmission Date: 20150326
  Serious: Yes (Other)
  Sender: FDA-Public Use
  Company Number: BR-PFIZER INC-2013317216

PATIENT
  Age: 51 Year
  Sex: Female
  Weight: 86 kg

DRUGS (3)
  1. LYRICA [Suspect]
     Active Substance: PREGABALIN
     Indication: PAIN
     Dosage: 75 MG, 1X/DAY
     Route: 048
     Dates: start: 201307
  2. LYRICA [Suspect]
     Active Substance: PREGABALIN
     Indication: DIABETIC NEUROPATHY
     Dosage: 75 MG (ONE CAPSULE), 1X/DAY
     Route: 048
     Dates: start: 20130705
  3. LYRICA [Suspect]
     Active Substance: PREGABALIN
     Indication: VIITH NERVE PARALYSIS
     Dosage: 75 MG, 2X/DAY
     Route: 048

REACTIONS (7)
  - Nervousness [Unknown]
  - Off label use [Unknown]
  - Pain [Recovered/Resolved]
  - Diabetes mellitus inadequate control [Unknown]
  - Hypertension [Unknown]
  - Diabetic neuropathy [Unknown]
  - Herpes virus infection [Unknown]

NARRATIVE: CASE EVENT DATE: 2013
